FAERS Safety Report 4349967-0 (Version None)
Quarter: 2004Q2

REPORT INFORMATION
  Report Type: 
  Country: None (occurrence: None)
  Receive Date: 20040428
  Receipt Date: 20040428
  Transmission Date: 20050107
  Serious: Yes (Hospitalization)
  Sender: FDA-Public Use
  Company Number: None

PATIENT
  Age: 37 Year
  Sex: Female
  Weight: 61.6892 kg

DRUGS (3)
  1. TRIPTORELIN [Suspect]
     Dosage: 3.75 MG IM
     Route: 030
     Dates: start: 20040217
  2. TRIPTORELIN [Suspect]
     Dosage: 3.75 MG IM
     Route: 030
     Dates: start: 20040317
  3. TRIPTORELIN [Suspect]
     Dosage: 3.75 MG IM
     Route: 030
     Dates: start: 20040414

REACTIONS (3)
  - ABDOMINAL PAIN [None]
  - NAUSEA [None]
  - VOMITING [None]
